FAERS Safety Report 9437789 (Version 1)
Quarter: 2013Q3

REPORT INFORMATION
  Report Type: Spontaneous
  Country: US (occurrence: US)
  Receive Date: 20130802
  Receipt Date: 20130802
  Transmission Date: 20140515
  Serious: Yes (Hospitalization)
  Sender: FDA-Public Use
  Company Number: US-BRISTOL-MYERS SQUIBB COMPANY-17440058

PATIENT
  Age: 63 Year
  Sex: Female
  Weight: 81.63 kg

DRUGS (7)
  1. WARFARIN SODIUM [Suspect]
     Dates: end: 2011
  2. LYRICA [Concomitant]
     Indication: FIBROMYALGIA
     Dosage: CAPS
     Route: 048
  3. LYRICA [Concomitant]
     Indication: NEUROPATHY PERIPHERAL
     Dosage: CAPS
     Route: 048
  4. TIKOSYN [Concomitant]
     Indication: ATRIAL FIBRILLATION
     Dosage: CAPS
     Route: 048
     Dates: start: 201006
  5. ATENOLOL [Concomitant]
  6. CITALOPRAM [Concomitant]
     Indication: DEPRESSION
  7. LEVOTHYROXINE [Concomitant]
     Indication: THYROID DISORDER

REACTIONS (1)
  - Toxicity to various agents [Unknown]
